FAERS Safety Report 9628932 (Version 3)
Quarter: 2015Q3

REPORT INFORMATION
  Report Type: Report from Study
  Country: IT (occurrence: IT)
  Receive Date: 20131017
  Receipt Date: 20150804
  Transmission Date: 20151125
  Serious: Yes (Hospitalization)
  Sender: FDA-Public Use
  Company Number: PHHO2011IT020231

PATIENT
  Age: 67 Year
  Sex: Female
  Weight: 71 kg

DRUGS (4)
  1. LBH589 [Suspect]
     Active Substance: PANOBINOSTAT
     Indication: PLASMA CELL MYELOMA
     Dosage: 20 MG TIW, (2 WEEKS ON/1 WEEK OFF)
     Route: 048
     Dates: start: 20111031, end: 20111103
  2. LBH589 [Suspect]
     Active Substance: PANOBINOSTAT
     Dosage: 20 MG TIW, (2 WEEKS ON/1 WEEK OFF)
     Route: 048
     Dates: start: 20111121, end: 20111124
  3. COMPARATOR FORTECORTIN [Suspect]
     Active Substance: DEXAMETHASONE
     Indication: PLASMA CELL MYELOMA
     Dosage: 20 MG, UNK
     Route: 048
     Dates: start: 20111031, end: 20111124
  4. VELCADE [Suspect]
     Active Substance: BORTEZOMIB
     Indication: PLASMA CELL MYELOMA
     Dosage: 2.3 MG, UNK
     Route: 042
     Dates: start: 20111031, end: 20111124

REACTIONS (3)
  - Hypotension [Recovered/Resolved]
  - Hyponatraemia [Recovered/Resolved]
  - Vomiting [Recovered/Resolved]

NARRATIVE: CASE EVENT DATE: 20111128
